FAERS Safety Report 24607502 (Version 2)
Quarter: 2024Q4

REPORT INFORMATION
  Report Type: Spontaneous
  Country: PT (occurrence: PT)
  Receive Date: 20241112
  Receipt Date: 20241129
  Transmission Date: 20250115
  Serious: Yes (Death, Life-Threatening, Hospitalization, Other)
  Sender: BRISTOL-MYERS SQUIBB COMPANY
  Company Number: None

PATIENT
  Age: 68 Year
  Sex: Female
  Weight: 50 kg

DRUGS (7)
  1. OPDIVO [Suspect]
     Active Substance: NIVOLUMAB
     Indication: Oesophageal adenocarcinoma stage IV
     Dosage: 240MG 2/2 WEEKS
     Route: 042
     Dates: start: 20241021, end: 20241021
  2. DEXAMETHASONE [Concomitant]
     Active Substance: DEXAMETHASONE
     Indication: Product used for unknown indication
     Dosage: DEXAMETHASONE 10 MG, EVI, IN GLUCOSE 5% 100ML (15 MINUTES)
     Route: 042
     Dates: start: 20241021
  3. ONDANSETRON [Concomitant]
     Active Substance: ONDANSETRON
     Indication: Product used for unknown indication
     Dosage: ONDANSETRON 8 MG, EVI, IN 0.9% SODIUM CHLORIDE 100ML (15 MINUTES)
     Route: 042
     Dates: start: 20241021
  4. OXALIPLATIN [Concomitant]
     Active Substance: OXALIPLATIN
     Indication: Product used for unknown indication
     Dosage: OXALIPLATIN 85 MG/M?, EVI, IN GLUCOSE 5% 500ML (120 MINUTES)
     Route: 042
     Dates: start: 20241021
  5. LEUCOVORIN CALCIUM [Concomitant]
     Active Substance: LEUCOVORIN CALCIUM
     Indication: Product used for unknown indication
     Dosage: CALCIUM FOLINATE 400 MG/M?, EVI, IN GLUCOSE 5% 250ML (120 MINUTES)
     Route: 042
     Dates: start: 20241021
  6. FLUOROURACIL [Concomitant]
     Active Substance: FLUOROURACIL
     Indication: Product used for unknown indication
     Dosage: FLUOROURACIL 400 MG/M?, EVB (5 MINUTES)
     Route: 042
     Dates: start: 20211021
  7. FLUOROURACIL [Concomitant]
     Active Substance: FLUOROURACIL
     Dosage: FLUOROURACIL 2400 MG/M?, EVC (46 HOURS)

REACTIONS (2)
  - Stevens-Johnson syndrome [Fatal]
  - Malignant neoplasm progression [Fatal]

NARRATIVE: CASE EVENT DATE: 20241023
